FAERS Safety Report 6050271-3 (Version None)
Quarter: 2009Q1

REPORT INFORMATION
  Report Type: 
  Country: None (occurrence: None)
  Receive Date: 20090126
  Receipt Date: 20090115
  Transmission Date: 20090719
  Serious: Yes (Other)
  Sender: FDA-Public Use
  Company Number: ES-AMGEN-UK328711

PATIENT

DRUGS (1)
  1. KEPIVANCE [Suspect]
     Indication: DRUG USE FOR UNKNOWN INDICATION

REACTIONS (3)
  - MUCOSAL INFLAMMATION [None]
  - RASH [None]
  - SWOLLEN TONGUE [None]
